FAERS Safety Report 13088538 (Version 2)
Quarter: 2017Q1

REPORT INFORMATION
  Report Type: Report from Study
  Country: AR (occurrence: AR)
  Receive Date: 20170105
  Receipt Date: 20170207
  Transmission Date: 20170428
  Serious: Yes (Disabling)
  Sender: FDA-Public Use
  Company Number: PHHY2017AR000719

PATIENT
  Sex: Female

DRUGS (2)
  1. EXFORGE [Suspect]
     Active Substance: AMLODIPINE BESYLATE\VALSARTAN
     Indication: HYPERTENSION
     Dosage: 1 DF (AMLODIPINE 5, VALSARTAN 160, UNIT NOT REPORTED), QD
     Route: 065
  2. SINTROM [Suspect]
     Active Substance: ACENOCOUMAROL
     Indication: PURPURA
     Dosage: 0.25 DF, 4 TIMESPER WEEK (2 YEARS AGO)
     Route: 065

REACTIONS (8)
  - Wrong technique in product usage process [Unknown]
  - Blood pressure decreased [Not Recovered/Not Resolved]
  - Maculopathy [Unknown]
  - Blindness unilateral [Not Recovered/Not Resolved]
  - Drug prescribing error [Unknown]
  - Visual impairment [Unknown]
  - Fatigue [Not Recovered/Not Resolved]
  - Product use issue [Unknown]
